FAERS Safety Report 6982428-9 (Version None)
Quarter: 2010Q3

REPORT INFORMATION
  Report Type: 
  Country: None (occurrence: None)
  Receive Date: 20100914
  Receipt Date: 20100120
  Transmission Date: 20110219
  Serious: No
  Sender: FDA-Public Use
  Company Number: US-PFIZER INC-2009305531

PATIENT
  Sex: Female

DRUGS (10)
  1. LYRICA [Suspect]
     Indication: CENTRAL PAIN SYNDROME
     Dosage: 100 MG, 3X/DAY
     Route: 048
     Dates: start: 20080801
  2. IMURAN [Concomitant]
     Indication: PROPHYLAXIS AGAINST TRANSPLANT REJECTION
     Dosage: 50 MG, 1X/DAY
  3. PROGRAF [Concomitant]
     Indication: PROPHYLAXIS AGAINST TRANSPLANT REJECTION
     Dosage: 9 MG, 1X/DAY
  4. VITAMIN D [Concomitant]
     Dosage: 50000 IU, WEEKLY
  5. SYNTHROID [Concomitant]
     Dosage: 100 MG, 1X/DAY
  6. METOPROLOL [Concomitant]
     Dosage: 100 MG, 2X/DAY
  7. NORVASC [Concomitant]
     Dosage: 10 MG, 2X/DAY
  8. WARFARIN SODIUM [Concomitant]
     Dosage: 8 MG, 1X/DAY
  9. PREVACID [Concomitant]
     Dosage: 30 MG, 1X/DAY
  10. MAGNESIUM OXIDE [Concomitant]
     Dosage: 400MG NINE TABLETS DAILY

REACTIONS (2)
  - ARTHRALGIA [None]
  - JOINT SWELLING [None]
